FAERS Safety Report 24208782 (Version 2)
Quarter: 2024Q3

REPORT INFORMATION
  Report Type: Report from Study
  Country: US (occurrence: US)
  Receive Date: 20240814
  Receipt Date: 20240930
  Transmission Date: 20241017
  Serious: Yes (Hospitalization, Other)
  Sender: TAKEDA
  Company Number: US-TAKEDA-2024TUS073373

PATIENT
  Sex: Female

DRUGS (1)
  1. IXAZOMIB [Suspect]
     Active Substance: IXAZOMIB
     Indication: Plasma cell myeloma
     Dosage: 4 MILLIGRAM
     Route: 048
     Dates: start: 20240726

REACTIONS (4)
  - Fall [Recovering/Resolving]
  - Spinal fracture [Recovering/Resolving]
  - Contusion [Recovering/Resolving]
  - Urinary tract infection [Not Recovered/Not Resolved]
